FAERS Safety Report 22311363 (Version 2)
Quarter: 2023Q4

REPORT INFORMATION
  Report Type: Spontaneous
  Country: US (occurrence: US)
  Receive Date: 20230511
  Receipt Date: 20231025
  Transmission Date: 20240109
  Serious: No
  Sender: FDA-Public Use
  Company Number: US-TEVA-2023-US-2877729

PATIENT
  Age: 83 Year
  Sex: Female

DRUGS (1)
  1. MESALAMINE [Suspect]
     Active Substance: MESALAMINE
     Indication: Colitis
     Route: 054
     Dates: start: 20230404, end: 202304

REACTIONS (8)
  - Rash pruritic [Recovering/Resolving]
  - Drug hypersensitivity [Unknown]
  - Rash papular [Unknown]
  - Fatigue [Unknown]
  - Skin fissures [Recovering/Resolving]
  - Skin exfoliation [Recovering/Resolving]
  - Hordeolum [Unknown]
  - Drug ineffective [Unknown]

NARRATIVE: CASE EVENT DATE: 20230401
